FAERS Safety Report 9798244 (Version 2)
Quarter: 2014Q1

REPORT INFORMATION
  Report Type: Spontaneous
  Country: IT (occurrence: IT)
  Receive Date: 20140106
  Receipt Date: 20140115
  Transmission Date: 20141002
  Serious: Yes (Life-Threatening, Hospitalization)
  Sender: FDA-Public Use
  Company Number: IT-TEVA-454223ISR

PATIENT
  Age: 54 Year
  Sex: Female
  Weight: 57 kg

DRUGS (3)
  1. PACLITAXEL TEVA [Suspect]
     Indication: BREAST CANCER
     Dosage: CONCENTRATE FOR SOLUTION FOR INTRAVENOUS INFUSION
     Route: 042
     Dates: start: 20131014, end: 20131227
  2. PACLITAXEL SANDOZ [Suspect]
     Indication: BREAST CANCER
     Dosage: CONCENTRATE FOR SOLUTION FOR INTRAVENOUS INFUSION
     Route: 042
     Dates: start: 20131014, end: 20131227
  3. HERCEPTIN [Concomitant]
     Route: 042
     Dates: start: 20131014, end: 20131227

REACTIONS (4)
  - Pulmonary oedema [Recovered/Resolved]
  - Cyanosis [Recovered/Resolved]
  - Blood pressure increased [Recovered/Resolved]
  - Loss of consciousness [Recovered/Resolved]
